FAERS Safety Report 16766458 (Version 1)
Quarter: 2019Q4

REPORT INFORMATION
  Report Type: Spontaneous
  Country: US (occurrence: US)
  Receive Date: 20190831
  Receipt Date: 20190831
  Transmission Date: 20200122
  Serious: No
  Sender: FDA-Public Use
  Company Number: None

PATIENT
  Age: 50 Year
  Sex: Female
  Weight: 84.6 kg

DRUGS (12)
  1. BIOTION [Concomitant]
  2. TRAZODONE [Concomitant]
     Active Substance: TRAZODONE HYDROCHLORIDE
  3. VENFLAXINE [Concomitant]
  4. VITAMIN B12 [Concomitant]
     Active Substance: CYANOCOBALAMIN
  5. GABAPENTIN. [Concomitant]
     Active Substance: GABAPENTIN
  6. FOLIC ACID. [Concomitant]
     Active Substance: FOLIC ACID
  7. ENTYVIO [Suspect]
     Active Substance: VEDOLIZUMAB
     Indication: CROHN^S DISEASE
     Dosage: ?          OTHER FREQUENCY: INFUSION EVERY 8 W;?
     Route: 042
  8. ENTYVIO [Concomitant]
     Active Substance: VEDOLIZUMAB
  9. PEPCID [Concomitant]
     Active Substance: FAMOTIDINE
  10. FAMOTIDINE. [Concomitant]
     Active Substance: FAMOTIDINE
  11. ATORVASTATIN [Concomitant]
     Active Substance: ATORVASTATIN
  12. VITAMIN D [Concomitant]
     Active Substance: VITAMIN D NOS

REACTIONS (1)
  - Alopecia [None]
